FAERS Safety Report 11071935 (Version 1)
Quarter: 2015Q2

REPORT INFORMATION
  Report Type: Spontaneous
  Country: CN (occurrence: CN)
  Receive Date: 20150428
  Receipt Date: 20150428
  Transmission Date: 20150821
  Serious: Yes (Hospitalization, Disabling, Other)
  Sender: FDA-Public Use
  Company Number: CN-PFIZER INC-2015144785

PATIENT
  Age: 74 Year
  Sex: Male

DRUGS (1)
  1. CORDARONE [Suspect]
     Active Substance: AMIODARONE HYDROCHLORIDE
     Indication: ATRIAL FIBRILLATION
     Dosage: 0.4 G, 3X/DAY
     Route: 048
     Dates: start: 20140801, end: 20141024

REACTIONS (8)
  - Pulmonary fibrosis [Unknown]
  - Pneumonia [Unknown]
  - Respiratory failure [Unknown]
  - Arrhythmia [Unknown]
  - Atrial fibrillation [Unknown]
  - Cardiac failure chronic [Unknown]
  - Arteriosclerosis [Unknown]
  - Condition aggravated [Unknown]

NARRATIVE: CASE EVENT DATE: 20141020
